FAERS Safety Report 9228737 (Version 2)
Quarter: 2013Q2

REPORT INFORMATION
  Report Type: Spontaneous
  Country: FR (occurrence: FR)
  Receive Date: 20130412
  Receipt Date: 20130611
  Transmission Date: 20140414
  Serious: Yes (Life-Threatening)
  Sender: FDA-Public Use
  Company Number: FR-PFIZER INC-2013110924

PATIENT
  Age: 48 Year
  Sex: Female

DRUGS (1)
  1. ADEPAL [Suspect]
     Indication: CONTRACEPTION
     Dosage: (150-200UG/ 30-40UG), UNK
     Route: 048
     Dates: start: 1997, end: 20120201

REACTIONS (2)
  - Acute myocardial infarction [Recovered/Resolved with Sequelae]
  - Coronary artery stenosis [Recovered/Resolved with Sequelae]
